FAERS Safety Report 10869520 (Version 1)
Quarter: 2015Q1

REPORT INFORMATION
  Report Type: Report from Study
  Country: BR (occurrence: BR)
  Receive Date: 20150226
  Receipt Date: 20150226
  Transmission Date: 20150721
  Serious: Yes (Other)
  Sender: FDA-Public Use
  Company Number: BR-GLAXOSMITHKLINE-BR2015GSK023408

PATIENT
  Sex: Female
  Weight: 70 kg

DRUGS (2)
  1. PROPAFENONE HYDROCHLORIDE. [Suspect]
     Active Substance: PROPAFENONE HYDROCHLORIDE
     Dosage: 150 MG, BID
     Route: 048
     Dates: start: 2013
  2. PROPAFENONE HYDROCHLORIDE. [Suspect]
     Active Substance: PROPAFENONE HYDROCHLORIDE
     Indication: ARRHYTHMIA
     Dosage: 300 MG, BID
     Dates: start: 2003, end: 2006

REACTIONS (2)
  - Pain [Unknown]
  - Cardiac ablation [Recovering/Resolving]

NARRATIVE: CASE EVENT DATE: 2006
